APPROVED DRUG PRODUCT: MYCOPHENOLATE MOFETIL
Active Ingredient: MYCOPHENOLATE MOFETIL
Strength: 500MG
Dosage Form/Route: TABLET;ORAL
Application: A065451 | Product #001 | TE Code: AB
Applicant: SANDOZ INC
Approved: Oct 15, 2008 | RLD: No | RS: No | Type: RX